FAERS Safety Report 6036036-7 (Version None)
Quarter: 2009Q1

REPORT INFORMATION
  Report Type: 
  Country: None (occurrence: None)
  Receive Date: 20090113
  Receipt Date: 20090108
  Transmission Date: 20090719
  Serious: Yes (Death, Life-Threatening, Hospitalization)
  Sender: FDA-Public Use
  Company Number: GB-PFIZER INC-2008047800

PATIENT

DRUGS (1)
  1. INHALED HUMAN INSULIN [Suspect]
     Dosage: 6 MG, 3X/DAY
     Route: 055
     Dates: start: 20070502, end: 20080529

REACTIONS (1)
  - BRAIN NEOPLASM [None]
